FAERS Safety Report 18543912 (Version 2)
Quarter: 2020Q4

REPORT INFORMATION
  Report Type: Spontaneous
  Country: AU (occurrence: AU)
  Receive Date: 20201125
  Receipt Date: 20201230
  Transmission Date: 20210114
  Serious: Yes (Other)
  Sender: FDA-Public Use
  Company Number: AU-REGENERON PHARMACEUTICALS, INC.-2020-90350

PATIENT

DRUGS (1)
  1. EYLEA [Suspect]
     Active Substance: AFLIBERCEPT
     Indication: DIABETIC RETINAL OEDEMA
     Dosage: UNK
     Route: 031
     Dates: start: 20201020

REACTIONS (5)
  - Anxiety [Unknown]
  - Visual impairment [Recovered/Resolved]
  - Dementia [Not Recovered/Not Resolved]
  - Panic reaction [Unknown]
  - Conjunctivitis [Unknown]
